FAERS Safety Report 6121182-X (Version None)
Quarter: 2009Q1

REPORT INFORMATION
  Report Type: 
  Country: None (occurrence: None)
  Receive Date: 20090312
  Receipt Date: 20090312
  Transmission Date: 20090719
  Serious: Yes (Disabling, Other)
  Sender: FDA-Public Use
  Company Number: None

PATIENT
  Age: 25 Year
  Sex: Female
  Weight: 106.1417 kg

DRUGS (2)
  1. MIRENA [Suspect]
     Indication: CONTRACEPTION
     Dates: start: 20050330, end: 20090312
  2. MIRENA [Suspect]
     Indication: MENSTRUAL DISORDER
     Dates: start: 20050330, end: 20090312

REACTIONS (10)
  - ABDOMINAL PAIN LOWER [None]
  - ACNE [None]
  - ALOPECIA [None]
  - BACK PAIN [None]
  - INFLAMMATION [None]
  - MIGRAINE [None]
  - MOOD SWINGS [None]
  - NERVOUS SYSTEM DISORDER [None]
  - SWELLING [None]
  - WEIGHT INCREASED [None]
